FAERS Safety Report 23414115 (Version 1)
Quarter: 2024Q1

REPORT INFORMATION
  Report Type: Other
  Country: GB (occurrence: GB)
  Receive Date: 20240117
  Receipt Date: 20240117
  Transmission Date: 20240409
  Serious: Yes (Other)
  Sender: FDA-Public Use
  Company Number: None

PATIENT

DRUGS (3)
  1. ADALIMUMAB [Suspect]
     Active Substance: ADALIMUMAB\ISOPROPYL ALCOHOL
     Indication: Crohn^s disease
     Dosage: UNK (SOLUTION FOR INJECTION)
     Route: 050
  2. INFLIXIMAB [Suspect]
     Active Substance: INFLIXIMAB
     Indication: Product used for unknown indication
     Dosage: UNK
     Route: 065
  3. UPADACITINIB [Suspect]
     Active Substance: UPADACITINIB
     Indication: Product used for unknown indication
     Dosage: UNK
     Route: 050

REACTIONS (7)
  - Spondyloarthropathy [Unknown]
  - Intestinal transit time decreased [Unknown]
  - Gastrointestinal disorder [Unknown]
  - Surgery [Unknown]
  - Product residue present [Unknown]
  - Drug resistance [Unknown]
  - Drug resistance [Unknown]
